FAERS Safety Report 24889662 (Version 2)
Quarter: 2025Q1

REPORT INFORMATION
  Report Type: Spontaneous
  Country: US (occurrence: US)
  Receive Date: 20250127
  Receipt Date: 20250218
  Transmission Date: 20250409
  Serious: No
  Sender: BRISTOL-MYERS SQUIBB COMPANY
  Company Number: US-BRISTOL-MYERS SQUIBB COMPANY-2025-009112

PATIENT
  Age: 75 Year
  Sex: Female

DRUGS (1)
  1. LENALIDOMIDE [Suspect]
     Active Substance: LENALIDOMIDE
     Indication: Plasma cell myeloma
     Dosage: TAKE 1 CAPSULE (5MG) BY MOUTH EVERY DAY FOR 21 DAYS, FOLLOWED BY 7 DAYS OF REST
     Route: 048

REACTIONS (9)
  - Diarrhoea [Not Recovered/Not Resolved]
  - Ageusia [Unknown]
  - Dysgeusia [Unknown]
  - Pain in extremity [Not Recovered/Not Resolved]
  - Osteoporosis [Unknown]
  - Gastroenteritis viral [Recovered/Resolved]
  - Blood iron abnormal [Unknown]
  - Incontinence [Unknown]
  - Psychiatric symptom [Unknown]

NARRATIVE: CASE EVENT DATE: 20250101
